FAERS Safety Report 15193001 (Version 1)
Quarter: 2018Q3

REPORT INFORMATION
  Report Type: Spontaneous
  Country: FR (occurrence: FR)
  Receive Date: 20180725
  Receipt Date: 20180725
  Transmission Date: 20181010
  Serious: Yes (Other)
  Sender: FDA-Public Use
  Company Number: FR-AUROBINDO-AUR-APL-2018-037447

PATIENT
  Age: 78 Year
  Sex: Male

DRUGS (7)
  1. TOCILIZUMAB. [Suspect]
     Active Substance: TOCILIZUMAB
     Indication: PRODUCT USED FOR UNKNOWN INDICATION
     Dosage: 8 MILLIGRAM/KILOGRAM, EVERY MONTH (8 MG/KG, QMO)
     Route: 065
     Dates: start: 201712
  2. MYCOPHENOLATE MOFETIL. [Suspect]
     Active Substance: MYCOPHENOLATE MOFETIL
     Indication: CYSTOID MACULAR OEDEMA
     Dosage: 2 GRAM, DAILY (1 G, BID)
     Route: 065
     Dates: start: 201708, end: 201802
  3. PREDNISONE. [Suspect]
     Active Substance: PREDNISONE
     Indication: CYSTOID MACULAR OEDEMA
     Dosage: 14 MILLIGRAM, DAILY
     Route: 065
  4. PREDNISONE. [Suspect]
     Active Substance: PREDNISONE
     Dosage: 20 MG DAILY
     Route: 065
  5. PREDNISONE. [Suspect]
     Active Substance: PREDNISONE
     Dosage: 12 MILLIGRAM, DAILY (12 MG, QD)
     Route: 065
     Dates: end: 201802
  6. SOLU?MEDROL [Suspect]
     Active Substance: METHYLPREDNISOLONE SODIUM SUCCINATE
     Indication: CYSTOID MACULAR OEDEMA
     Dosage: 500 MILLIGRAM (500 MG IN BOLUS (3 TIMES) WITH ORAL RELAY)
     Route: 065
  7. AZATHIOPRINE. [Suspect]
     Active Substance: AZATHIOPRINE
     Indication: PRODUCT USED FOR UNKNOWN INDICATION
     Dosage: 1 UNK EVERY MONTH (UNK UNK, QMO)
     Route: 065
     Dates: start: 201712

REACTIONS (5)
  - Treatment failure [Unknown]
  - Disease recurrence [Recovered/Resolved]
  - Product use in unapproved indication [Unknown]
  - Hepatitis [Unknown]
  - Cystoid macular oedema [Recovered/Resolved]

NARRATIVE: CASE EVENT DATE: 201706
